FAERS Safety Report 23471778 (Version 1)
Quarter: 2024Q1

REPORT INFORMATION
  Report Type: Spontaneous
  Country: US (occurrence: US)
  Receive Date: 20240202
  Receipt Date: 20240202
  Transmission Date: 20240409
  Serious: Yes (Other)
  Sender: FDA-Public Use
  Company Number: US-BAYER-2024A015176

PATIENT
  Age: 13 Year
  Sex: Male

DRUGS (1)
  1. JIVI [Suspect]
     Active Substance: DAMOCTOCOG ALFA PEGOL
     Indication: Haemorrhage
     Dosage: 2200 IU (EVERY 5 DAYS PROPHY)

REACTIONS (3)
  - Muscle haemorrhage [None]
  - Ligament sprain [None]
  - Sports injury [None]

NARRATIVE: CASE EVENT DATE: 20230113
